FAERS Safety Report 4803722-3 (Version None)
Quarter: 2005Q3

REPORT INFORMATION
  Report Type: 
  Country: None (occurrence: None)
  Receive Date: 20050920
  Receipt Date: 20050802
  Transmission Date: 20060218
  Serious: No
  Sender: FDA-Public Use
  Company Number: US-YAMANOUCHI-YPA20050392

PATIENT
  Age: 67 Year
  Sex: Female

DRUGS (8)
  1. VESICARE [Suspect]
  2. ENABLEX [Suspect]
     Dosage: 7.5 MG QD
     Dates: start: 20050714, end: 20050714
  3. ENABLEX [Suspect]
  4. CORGARD [Concomitant]
  5. NORVASC [Concomitant]
  6. XANAX [Concomitant]
  7. ZOLOFT [Concomitant]
  8. ZOCOR [Concomitant]

REACTIONS (1)
  - CONSTIPATION [None]
